FAERS Safety Report 5732620-6 (Version None)
Quarter: 2008Q2

REPORT INFORMATION
  Report Type: 
  Country: None (occurrence: None)
  Receive Date: 20080507
  Receipt Date: 20080428
  Transmission Date: 20081010
  Serious: Yes (Death)
  Sender: FDA-Public Use
  Company Number: GXBR2008US01010

PATIENT
  Age: 28 Year
  Sex: Male

DRUGS (6)
  1. TEMAZEPAM                (TEMAZEPAM) CAPSULE [Suspect]
  2. DIAZEPAM                     (DIAZEPAM) TABLET [Suspect]
  3. ALPRAZOLAM [Suspect]
  4. OXYCODONE HCL [Suspect]
  5. HYDROCODONE          (HYDROCODONE) [Suspect]
  6. DOXYLAMINE SUCCINATE [Suspect]

REACTIONS (1)
  - DRUG TOXICITY [None]
